FAERS Safety Report 15019863 (Version 1)
Quarter: 2018Q2

REPORT INFORMATION
  Report Type: Spontaneous
  Country: DE (occurrence: DE)
  Receive Date: 20180618
  Receipt Date: 20180618
  Transmission Date: 20180711
  Serious: Yes (Hospitalization)
  Sender: FDA-Public Use
  Company Number: DE-TEVA-2018-DE-908570

PATIENT
  Age: 79 Year
  Sex: Male
  Weight: 68 kg

DRUGS (13)
  1. ADENURIC 80MG [Concomitant]
     Dosage: 0.5-0-0.
     Route: 048
  2. ZOPICLON [Concomitant]
     Active Substance: ZOPICLONE
     Route: 048
  3. METOPROLOLSUCCINAT HEUMANN 47,5MG [Concomitant]
     Dosage: 47.5 MILLIGRAM DAILY;
     Route: 048
  4. ELIQUIS [Concomitant]
     Active Substance: APIXABAN
     Dosage: 5 MILLIGRAM DAILY;
     Route: 048
  5. VOLTAREN [Suspect]
     Active Substance: DICLOFENAC SODIUM
     Dosage: 25 MILLIGRAM DAILY;
     Route: 048
  6. PANTOPRAZOL AAA 40MG [Concomitant]
     Dosage: 40 MILLIGRAM DAILY;
     Route: 048
  7. EPLERENON BETA 50MG [Suspect]
     Active Substance: EPLERENONE
     Dosage: 50 MILLIGRAM DAILY;
     Route: 048
  8. NOVAMINSULFON 500 [Concomitant]
     Active Substance: METAMIZOLE
     Route: 048
  9. DYTIDE H 50MG/25MG [Suspect]
     Active Substance: HYDROCHLOROTHIAZIDE\TRIAMTERENE
     Dosage: .5 DOSAGE FORMS DAILY; 50|25 MG, 0.5-0-0-0, TABLETTEN
     Route: 048
  10. ATORVASTATIN-RATIOPHARM 40MG [Concomitant]
     Active Substance: ATORVASTATIN
     Dosage: 40 MILLIGRAM DAILY;
     Route: 048
  11. KALIUM VERLA [Concomitant]
     Active Substance: POTASSIUM CITRATE
     Dosage: 60 MILLIMOL DAILY;
     Route: 048
  12. FUROSEMID-RATIOPHARM 125MG [Suspect]
     Active Substance: FUROSEMIDE
     Dosage: 2-2-0-0
     Route: 048
  13. XIPAMID [Suspect]
     Active Substance: XIPAMIDE
     Dosage: 10 MILLIGRAM DAILY;
     Route: 048

REACTIONS (7)
  - Drug prescribing error [Unknown]
  - Dizziness [Unknown]
  - Waist circumference increased [Unknown]
  - Arrhythmia [Unknown]
  - Oedema peripheral [Unknown]
  - Dyspnoea exertional [Unknown]
  - General physical health deterioration [Unknown]
